FAERS Safety Report 11994086 (Version 2)
Quarter: 2016Q1

REPORT INFORMATION
  Report Type: Spontaneous
  Country: US (occurrence: US)
  Receive Date: 20160203
  Receipt Date: 20160309
  Transmission Date: 20160526
  Serious: Yes (Death, Hospitalization)
  Sender: FDA-Public Use
  Company Number: US-PFIZER INC-2016052381

PATIENT
  Age: 73 Year
  Sex: Male

DRUGS (1)
  1. VFEND [Suspect]
     Active Substance: VORICONAZOLE
     Dosage: 20 MG, 1X/DAY
     Dates: start: 201510

REACTIONS (2)
  - Condition aggravated [Fatal]
  - Acute leukaemia [Fatal]

NARRATIVE: CASE EVENT DATE: 201510
